FAERS Safety Report 11663327 (Version 1)
Quarter: 2015Q4

REPORT INFORMATION
  Report Type: Spontaneous
  Country: US (occurrence: None)
  Receive Date: 20151026
  Receipt Date: 20151026
  Transmission Date: 20160304
  Serious: Yes (Death, Hospitalization)
  Sender: FDA-Public Use
  Company Number: None

PATIENT
  Age: 12 Year
  Sex: Female
  Weight: 33.7 kg

DRUGS (13)
  1. CEFEPIME [Concomitant]
     Active Substance: CEFEPIME HYDROCHLORIDE
  2. POLYETHYLENE GLYCOL 3350. [Concomitant]
     Active Substance: POLYETHYLENE GLYCOL 3350
  3. METHOTREXATE [Suspect]
     Active Substance: METHOTREXATE
     Dates: end: 20151007
  4. MITOXANTRONE HYDROCHLORIDE. [Suspect]
     Active Substance: MITOXANTRONE HYDROCHLORIDE
     Dates: end: 20151002
  5. FLUCONAZOLE. [Concomitant]
     Active Substance: FLUCONAZOLE
  6. DEXAMETHASONE. [Suspect]
     Active Substance: DEXAMETHASONE
     Dates: end: 20151018
  7. VINCRISTINE SULFATE. [Suspect]
     Active Substance: VINCRISTINE SULFATE
     Dates: end: 20151014
  8. ACETAMINOPHIN [Concomitant]
  9. DOCUSATE [Concomitant]
     Active Substance: DOCUSATE
  10. RANITIDINE [Concomitant]
     Active Substance: RANITIDINE\RANITIDINE HYDROCHLORIDE
  11. PENTAMIDINE [Concomitant]
     Active Substance: PENTAMIDINE
  12. SENNA [Concomitant]
     Active Substance: SENNA LEAF\SENNOSIDES\SENNOSIDES A AND B
  13. ONCASPAR [Suspect]
     Active Substance: PEGASPARGASE
     Dosage: 6000 UNIT
     Dates: end: 20151016

REACTIONS (12)
  - Constipation [None]
  - Pupil fixed [None]
  - Brain death [None]
  - Pancytopenia [None]
  - Apnoea [None]
  - Pulse absent [None]
  - Unresponsive to stimuli [None]
  - Tachycardia [None]
  - Seizure [None]
  - Bacillus test positive [None]
  - Cerebral infarction [None]
  - Brain oedema [None]

NARRATIVE: CASE EVENT DATE: 20151019
